FAERS Safety Report 4755449-4 (Version None)
Quarter: 2005Q3

REPORT INFORMATION
  Report Type: 
  Country: None (occurrence: None)
  Receive Date: 20050829
  Receipt Date: 20050817
  Transmission Date: 20060218
  Serious: Yes (Disabling)
  Sender: FDA-Public Use
  Company Number: GXKR2005DK01490

PATIENT
  Sex: Male

DRUGS (1)
  1. DICLOFENAC (NGX)(DICLOFENAC) [Suspect]
     Dosage: ORAL
     Route: 048
     Dates: start: 20040224

REACTIONS (3)
  - DIFFICULTY IN WALKING [None]
  - OEDEMA PERIPHERAL [None]
  - SKIN DISORDER [None]
